FAERS Safety Report 9267195 (Version 1)
Quarter: 2013Q2

REPORT INFORMATION
  Report Type: Spontaneous
  Country: US (occurrence: US)
  Receive Date: 20130502
  Receipt Date: 20130502
  Transmission Date: 20140414
  Serious: Yes (Other)
  Sender: FDA-Public Use
  Company Number: PHEH2013US009563

PATIENT
  Age: 75 Year
  Sex: Female

DRUGS (2)
  1. RITALIN [Suspect]
     Indication: NARCOLEPSY
     Dosage: UNK
     Route: 048
  2. CELEBREX [Concomitant]

REACTIONS (6)
  - Road traffic accident [Recovering/Resolving]
  - Arrhythmia [Recovered/Resolved]
  - Arthritis [Recovering/Resolving]
  - Concussion [Recovering/Resolving]
  - Sudden onset of sleep [Not Recovered/Not Resolved]
  - Headache [Recovering/Resolving]
